FAERS Safety Report 4926233-3 (Version None)
Quarter: 2006Q1

REPORT INFORMATION
  Report Type: 
  Country: None (occurrence: None)
  Receive Date: 20060228
  Receipt Date: 20051213
  Transmission Date: 20060701
  Serious: No
  Sender: FDA-Public Use
  Company Number: US-GLAXOSMITHKLINE-A0585696A

PATIENT
  Age: 54 Year
  Sex: Female

DRUGS (5)
  1. LAMICTAL [Suspect]
     Indication: DRUG USE FOR UNKNOWN INDICATION
     Dosage: 300MG PER DAY
     Route: 048
     Dates: start: 20051209, end: 20051211
  2. IMIPRAMINE [Concomitant]
  3. TRAZODONE [Concomitant]
  4. BUPROPION HCL [Concomitant]
  5. LORATADINE [Concomitant]

REACTIONS (1)
  - MEDICATION ERROR [None]
